FAERS Safety Report 18319902 (Version 4)
Quarter: 2020Q4

REPORT INFORMATION
  Report Type: Spontaneous
  Country: US (occurrence: US)
  Receive Date: 20200928
  Receipt Date: 20201106
  Transmission Date: 20210113
  Serious: Yes (Hospitalization, Other)
  Sender: FDA-Public Use
  Company Number: US-ASTRAZENECA-2020SF23245

PATIENT
  Age: 17727 Day
  Sex: Female
  Weight: 100.2 kg

DRUGS (51)
  1. GABAPENTIN. [Concomitant]
     Active Substance: GABAPENTIN
  2. CALCIUM CARBONATE. [Concomitant]
     Active Substance: CALCIUM CARBONATE
  3. KETOROLAC [Concomitant]
     Active Substance: KETOROLAC TROMETHAMINE
  4. FARXIGA [Suspect]
     Active Substance: DAPAGLIFLOZIN PROPANEDIOL
     Indication: BLOOD PRESSURE DECREASED
     Route: 048
     Dates: start: 20150428, end: 20150801
  5. NOVOLOG [Concomitant]
     Active Substance: INSULIN ASPART
  6. ACYCLOVIR. [Concomitant]
     Active Substance: ACYCLOVIR
  7. GLUCAGON. [Concomitant]
     Active Substance: GLUCAGON
  8. CEPHALEXIN. [Concomitant]
     Active Substance: CEPHALEXIN
  9. VITAMIN D [Concomitant]
     Active Substance: VITAMIN D NOS
  10. AMOXICILLIN. [Concomitant]
     Active Substance: AMOXICILLIN
  11. MIDAZOLAM. [Concomitant]
     Active Substance: MIDAZOLAM
  12. DEXTROSE. [Concomitant]
     Active Substance: DEXTROSE
  13. CHOLECALCIFEROL [Concomitant]
     Active Substance: CHOLECALCIFEROL
  14. PANTOPRAZOLE [Concomitant]
     Active Substance: PANTOPRAZOLE
  15. DOXEPIN HCL [Concomitant]
     Active Substance: DOXEPIN HYDROCHLORIDE
  16. FLUCONAZOLE. [Concomitant]
     Active Substance: FLUCONAZOLE
  17. SIMVASTATIN. [Concomitant]
     Active Substance: SIMVASTATIN
  18. DIAZEPAM. [Concomitant]
     Active Substance: DIAZEPAM
  19. BUPROPION. [Concomitant]
     Active Substance: BUPROPION
  20. MEDROXYPROGESTERONE [Concomitant]
     Active Substance: MEDROXYPROGESTERONE
  21. DOCUSATE [Concomitant]
     Active Substance: DOCUSATE
  22. LINEZOLID. [Concomitant]
     Active Substance: LINEZOLID
  23. PROPOFOL. [Concomitant]
     Active Substance: PROPOFOL
  24. FENTANYL. [Concomitant]
     Active Substance: FENTANYL
  25. POTASSIUM CHLORIDE. [Concomitant]
     Active Substance: POTASSIUM CHLORIDE
  26. FARXIGA [Suspect]
     Active Substance: DAPAGLIFLOZIN PROPANEDIOL
     Indication: TYPE 2 DIABETES MELLITUS
     Route: 048
     Dates: start: 20150428, end: 20150801
  27. ECONAZOLE NITRATE. [Concomitant]
     Active Substance: ECONAZOLE NITRATE
  28. DOXEPIN [Concomitant]
     Active Substance: DOXEPIN
  29. PERMETHRIN. [Concomitant]
     Active Substance: PERMETHRIN
  30. VITAMIN B COMPLEX [Concomitant]
     Active Substance: CYANOCOBALAMIN\DEXPANTHENOL\NIACINAMIDE\PYRIDOXINE HYDROCHLORIDE\RIBOFLAVIN 5^-PHOSPHATE SODIUM\THIAMINE HYDROCHLORIDE\VITAMIN B COMPLEX
  31. VANCOMYCIN [Concomitant]
     Active Substance: VANCOMYCIN
  32. FAMOTIDINE. [Concomitant]
     Active Substance: FAMOTIDINE
  33. FARXIGA [Suspect]
     Active Substance: DAPAGLIFLOZIN PROPANEDIOL
     Indication: WEIGHT DECREASED
     Route: 048
     Dates: start: 20150428, end: 20150801
  34. LISINOPRIL. [Concomitant]
     Active Substance: LISINOPRIL
  35. VICTOZA [Concomitant]
     Active Substance: LIRAGLUTIDE
  36. HUMALOG [Concomitant]
     Active Substance: INSULIN LISPRO
  37. ZOLOFT [Concomitant]
     Active Substance: SERTRALINE HYDROCHLORIDE
  38. OXYCODONE/APAP [Concomitant]
     Active Substance: ACETAMINOPHEN\OXYCODONE HYDROCHLORIDE
  39. IBUPROFEN. [Concomitant]
     Active Substance: IBUPROFEN
  40. BACITRACIN. [Concomitant]
     Active Substance: BACITRACIN
  41. LORATADINE. [Concomitant]
     Active Substance: LORATADINE
  42. LANTUS [Concomitant]
     Active Substance: INSULIN GLARGINE
  43. ECONAZOLE. [Concomitant]
     Active Substance: ECONAZOLE NITRATE
  44. EPINEPHRINE. [Concomitant]
     Active Substance: EPINEPHRINE
  45. CHOLESTYRAMINE. [Concomitant]
     Active Substance: CHOLESTYRAMINE
  46. ONDANSETRON [Concomitant]
     Active Substance: ONDANSETRON
  47. TEMAZEPAM. [Concomitant]
     Active Substance: TEMAZEPAM
  48. ENOXAPARIN [Concomitant]
     Active Substance: ENOXAPARIN
  49. KETOCONAZOLE. [Concomitant]
     Active Substance: KETOCONAZOLE
  50. DIPHENHYDRAMINE. [Concomitant]
     Active Substance: DIPHENHYDRAMINE
  51. PIPERACILLIN/TAZOBACTAM [Concomitant]
     Active Substance: PIPERACILLIN SODIUM\TAZOBACTAM SODIUM

REACTIONS (13)
  - Abscess [Unknown]
  - Anal abscess [Unknown]
  - Vulval abscess [Unknown]
  - Necrotising fasciitis [Unknown]
  - Groin abscess [Unknown]
  - Cellulitis [Unknown]
  - Folliculitis [Unknown]
  - Vulval cellulitis [Unknown]
  - Fournier^s gangrene [Unknown]
  - Subcutaneous abscess [Unknown]
  - Perirectal abscess [Unknown]
  - Perineal abscess [Unknown]
  - Sepsis [Unknown]

NARRATIVE: CASE EVENT DATE: 20150817
